FAERS Safety Report 6430659-9 (Version None)
Quarter: 2009Q4

REPORT INFORMATION
  Report Type: 
  Country: None (occurrence: None)
  Receive Date: 20091106
  Receipt Date: 20091102
  Transmission Date: 20100525
  Serious: Yes (Hospitalization)
  Sender: FDA-Public Use
  Company Number: B0601230A

PATIENT
  Sex: Male

DRUGS (8)
  1. AUGMENTIN '125' [Suspect]
     Dosage: 1G PER DAY
     Route: 048
     Dates: start: 20090914, end: 20090924
  2. BETNEVAL [Concomitant]
     Dosage: 1UNIT PER DAY
     Route: 061
     Dates: end: 20090925
  3. DAFALGAN [Concomitant]
     Dosage: 500MG PER DAY
     Route: 048
     Dates: start: 20090301
  4. PRAVASTATIN [Concomitant]
     Dosage: 20MG PER DAY
     Route: 048
     Dates: start: 20030701
  5. PLAVIX [Concomitant]
     Dosage: 75MG PER DAY
     Route: 048
     Dates: start: 20030701
  6. DUPHALAC [Concomitant]
     Dosage: 1SAC TWICE PER DAY
     Route: 048
     Dates: end: 20090925
  7. RIVOTRIL [Concomitant]
     Dosage: 17DROP PER DAY
     Route: 048
     Dates: start: 20090301
  8. VOLTARENE EMULGEL [Concomitant]
     Dosage: 1UNIT TWICE PER DAY
     Route: 061
     Dates: end: 20090925

REACTIONS (9)
  - ABDOMINAL DISTENSION [None]
  - DECREASED APPETITE [None]
  - DEHYDRATION [None]
  - DIARRHOEA [None]
  - GENERAL PHYSICAL HEALTH DETERIORATION [None]
  - HYPONATRAEMIA [None]
  - OEDEMA PERIPHERAL [None]
  - THIRST [None]
  - TONGUE DRY [None]
